FAERS Safety Report 21222678 (Version 1)
Quarter: 2022Q3

REPORT INFORMATION
  Report Type: Spontaneous
  Country: PT (occurrence: PT)
  Receive Date: 20220817
  Receipt Date: 20220817
  Transmission Date: 20221027
  Serious: Yes (Other)
  Sender: FDA-Public Use
  Company Number: PT-Accord-271900

PATIENT
  Age: 62 Year
  Sex: Female

DRUGS (1)
  1. METHOTREXATE [Suspect]
     Active Substance: METHOTREXATE
     Indication: Rheumatoid arthritis
     Dosage: INJECTABLE METHOTREXATE 25 MG WEEKLY FOR EIGHT MONTHS

REACTIONS (2)
  - Skin ulcer [Recovered/Resolved]
  - Blood folate decreased [Unknown]
